FAERS Safety Report 19574335 (Version 3)
Quarter: 2023Q4

REPORT INFORMATION
  Report Type: Spontaneous
  Country: DK (occurrence: DK)
  Receive Date: 20210719
  Receipt Date: 20231116
  Transmission Date: 20240110
  Serious: Yes (Other)
  Sender: FDA-Public Use
  Company Number: DK-MLMSERVICE-20210701-2978627-2

PATIENT
  Age: 65 Year
  Sex: Male
  Weight: 71.9 kg

DRUGS (12)
  1. SPORANOX [Suspect]
     Active Substance: ITRACONAZOLE
     Indication: Onychomycosis
     Route: 048
  2. SPORANOX [Suspect]
     Active Substance: ITRACONAZOLE
     Indication: Onychomycosis
     Dosage: IN 3 MONTHS COURSES
     Route: 048
     Dates: end: 202006
  3. SPORANOX [Suspect]
     Active Substance: ITRACONAZOLE
     Dosage: INCREASED DOSE FOR 2 WEEKS
     Route: 048
  4. EZETIMIBE [Concomitant]
     Active Substance: EZETIMIBE
     Indication: Hypercholesterolaemia
     Route: 065
  5. SIMVASTATIN [Concomitant]
     Active Substance: SIMVASTATIN
     Indication: Hypercholesterolaemia
     Route: 065
  6. AMOROLFINE [Concomitant]
     Active Substance: AMOROLFINE
     Indication: Onychomycosis
     Dosage: NAIL VARNISH
     Route: 065
  7. AMLODIPINE [Concomitant]
     Active Substance: AMLODIPINE BESYLATE
     Indication: Essential hypertension
     Route: 065
  8. LOSARTAN [Concomitant]
     Active Substance: LOSARTAN
     Indication: Essential hypertension
     Route: 065
  9. FUROSEMIDE [Concomitant]
     Active Substance: FUROSEMIDE
     Indication: Essential hypertension
     Route: 065
  10. VERAPAMIL [Concomitant]
     Active Substance: VERAPAMIL HYDROCHLORIDE
     Indication: Essential hypertension
     Route: 065
  11. POTASSIUM CHLORIDE [Concomitant]
     Active Substance: POTASSIUM CHLORIDE
     Route: 065
  12. POTASSIUM CHLORIDE [Concomitant]
     Active Substance: POTASSIUM CHLORIDE
     Route: 065

REACTIONS (1)
  - Pseudoaldosteronism [Recovered/Resolved]

NARRATIVE: CASE EVENT DATE: 20190101
